FAERS Safety Report 5063425-X (Version None)
Quarter: 2006Q3

REPORT INFORMATION
  Report Type: 
  Country: None (occurrence: None)
  Receive Date: 20060724
  Receipt Date: 20060711
  Transmission Date: 20061208
  Serious: Yes (Other)
  Sender: FDA-Public Use
  Company Number: GXKR2006MK03984

PATIENT
  Age: 5 Year
  Sex: Female

DRUGS (3)
  1. METHYLPREDNISOLONE [Suspect]
     Indication: NEPHROTIC SYNDROME
     Dosage: 500 MG, 3 BOLUS INJECTIONS, INTRAVENOUS
     Route: 042
  2. PREDNISONE [Suspect]
     Indication: NEPHROTIC SYNDROME
     Dosage: 40 MG, QD
  3. CYCLOPHOSPHAMIDE [Concomitant]

REACTIONS (6)
  - CUSHINGOID [None]
  - DRUG DEPENDENCE [None]
  - GAIT DISTURBANCE [None]
  - HYPERTRICHOSIS [None]
  - JOINT SWELLING [None]
  - OSTEONECROSIS [None]
